FAERS Safety Report 5804046-8 (Version None)
Quarter: 2008Q3

REPORT INFORMATION
  Report Type: 
  Country: None (occurrence: None)
  Receive Date: 20080702
  Receipt Date: 20080528
  Transmission Date: 20090109
  Serious: Yes (Hospitalization)
  Sender: FDA-Public Use
  Company Number: OSCN-PR-0805L-0305

PATIENT
  Sex: Female

DRUGS (1)
  1. OMNISCAN [Suspect]
     Indication: DRUG USE FOR UNKNOWN INDICATION
     Dosage: 1.4 ML, SINGLE DOSE, I.T./SINGLE DOSE
     Route: 037

REACTIONS (7)
  - COLD SWEAT [None]
  - DRUG ADMINISTRATION ERROR [None]
  - GRAND MAL CONVULSION [None]
  - HALLUCINATION [None]
  - INCOHERENT [None]
  - NAUSEA [None]
  - VOMITING [None]
